FAERS Safety Report 24267446 (Version 1)
Quarter: 2024Q3

REPORT INFORMATION
  Report Type: Report from Study
  Country: CA (occurrence: CA)
  Receive Date: 20240830
  Receipt Date: 20240830
  Transmission Date: 20241016
  Serious: Yes (Hospitalization, Other)
  Sender: BIOCON
  Company Number: CA-BIOCON BIOLOGICS LIMITED-BBL2023001750

PATIENT

DRUGS (3)
  1. HULIO [Suspect]
     Active Substance: ADALIMUMAB-FKJP
     Indication: Crohn^s disease
     Dosage: 40 MG, QW
     Route: 058
     Dates: start: 20240106
  2. HULIO [Suspect]
     Active Substance: ADALIMUMAB-FKJP
     Dosage: 40 MG, QW
     Route: 058
  3. HULIO [Suspect]
     Active Substance: ADALIMUMAB-FKJP

REACTIONS (3)
  - Nephrolithiasis [Recovered/Resolved]
  - Deep vein thrombosis [Recovered/Resolved]
  - Off label use [Unknown]

NARRATIVE: CASE EVENT DATE: 20240101
